FAERS Safety Report 4868706-8 (Version None)
Quarter: 2005Q4

REPORT INFORMATION
  Report Type: 
  Country: None (occurrence: None)
  Receive Date: 20051223
  Receipt Date: 20051213
  Transmission Date: 20060501
  Serious: Yes (Other)
  Sender: FDA-Public Use
  Company Number: 2005168211

PATIENT
  Age: 67 Year
  Sex: Male
  Weight: 83.9154 kg

DRUGS (8)
  1. VIAGRA [Suspect]
     Indication: ERECTILE DYSFUNCTION
     Dosage: 50 MG (50 MG, AS NECESSARY), ORAL
     Route: 048
     Dates: start: 20030101, end: 20030101
  2. METFORMIN HCL [Concomitant]
  3. DILTIAZEM [Concomitant]
  4. ATENOLOL [Concomitant]
  5. METHADONE HCL [Concomitant]
  6. GABAPENTIN [Concomitant]
  7. ENALAPRIL MALEATE [Concomitant]
  8. GLIPIZIDE [Concomitant]

REACTIONS (3)
  - CHROMATOPSIA [None]
  - DRUG INEFFECTIVE [None]
  - VISION BLURRED [None]
